FAERS Safety Report 25988450 (Version 1)
Quarter: 2025Q4

REPORT INFORMATION
  Report Type: Spontaneous
  Country: EU (occurrence: EU)
  Receive Date: 20251103
  Receipt Date: 20251103
  Transmission Date: 20260117
  Serious: Yes (Hospitalization)
  Sender: GLAXOSMITHKLINE
  Company Number: EU-GLAXOSMITHKLINE INC-PT2025GSK142165

PATIENT
  Age: 61 Year
  Sex: Female

DRUGS (3)
  1. MEPOLIZUMAB [Suspect]
     Active Substance: MEPOLIZUMAB
     Indication: Asthma
     Dosage: UNK
  2. MEPOLIZUMAB [Suspect]
     Active Substance: MEPOLIZUMAB
     Dosage: UNK
  3. DEFLAZACORT [Concomitant]
     Active Substance: DEFLAZACORT
     Indication: Asthma
     Dosage: 9 MG, QD

REACTIONS (2)
  - Asthma [Recovering/Resolving]
  - Drug ineffective [Recovering/Resolving]
